FAERS Safety Report 4360352-8 (Version None)
Quarter: 2004Q2

REPORT INFORMATION
  Report Type: 
  Country: None (occurrence: None)
  Receive Date: 20040514
  Receipt Date: 20040507
  Transmission Date: 20050107
  Serious: Yes (Hospitalization)
  Sender: FDA-Public Use
  Company Number: 2004PK00818

PATIENT
  Age: 75 Year
  Sex: Female
  Weight: 95 kg

DRUGS (13)
  1. BELOC-ZOK MITE [Suspect]
     Indication: HYPERTENSION
     Dosage: 95 MG DAILY PO
     Route: 048
     Dates: start: 19991019, end: 20040105
  2. DIGITOXIN TAB [Suspect]
     Indication: CARDIAC FAILURE
     Dosage: 0.07 MG DAILY PO
     Route: 048
     Dates: start: 19770101, end: 20040104
  3. FALICARD [Suspect]
     Indication: CORONARY ARTERY DISEASE
     Dosage: 80 MG QD, PO
     Route: 048
     Dates: start: 20030101, end: 20040104
  4. FALICARD [Suspect]
     Indication: HYPERTENSION
     Dosage: 80 MG QD, PO
     Route: 048
     Dates: start: 20030101, end: 20040104
  5. FUROSEMIDE [Suspect]
     Indication: CARDIAC FAILURE
     Dosage: 40 MG BID PO
     Route: 048
     Dates: start: 20000309, end: 20040105
  6. FUROSEMIDE [Suspect]
     Indication: HYPERTENSION
     Dosage: 40 MG BID PO
     Route: 048
     Dates: start: 20000309, end: 20040105
  7. CYNT [Suspect]
     Indication: ESSENTIAL HYPERTENSION
     Dosage: 0.2 MG QD PO
     Route: 048
     Dates: start: 20030101
  8. ACENORM [Concomitant]
  9. ASPIRIN [Concomitant]
  10. CORVATON [Concomitant]
  11. EUTHYROX [Concomitant]
  12. IBUPROFEN [Concomitant]
  13. NEURONTIN [Concomitant]

REACTIONS (6)
  - BRADYCARDIA [None]
  - CARDIAC FAILURE [None]
  - CARDIOACTIVE DRUG LEVEL INCREASED [None]
  - DIZZINESS [None]
  - DRUG INTERACTION [None]
  - LOSS OF CONSCIOUSNESS [None]
